FAERS Safety Report 23221422 (Version 2)
Quarter: 2023Q4

REPORT INFORMATION
  Report Type: Spontaneous
  Country: TW (occurrence: TW)
  Receive Date: 20231123
  Receipt Date: 20231218
  Transmission Date: 20240110
  Serious: Yes (Death, Other)
  Sender: FDA-Public Use
  Company Number: TW-ASTELLAS-2023US035077

PATIENT
  Age: 70 Year
  Sex: Male

DRUGS (1)
  1. XOSPATA [Suspect]
     Active Substance: GILTERITINIB
     Indication: Acute myeloid leukaemia
     Route: 048
     Dates: start: 202310, end: 202311

REACTIONS (3)
  - Influenza [Fatal]
  - Thrombocytopenia [Unknown]
  - Underdose [Unknown]

NARRATIVE: CASE EVENT DATE: 20231001
